FAERS Safety Report 8389870-2 (Version None)
Quarter: 2012Q2

REPORT INFORMATION
  Report Type: 
  Country: None (occurrence: None)
  Receive Date: 20120521
  Receipt Date: 20120508
  Transmission Date: 20120825
  Serious: Yes (Hospitalization)
  Sender: FDA-Public Use
  Company Number: DSA_46801_2011

PATIENT
  Sex: Female
  Weight: 49.8957 kg

DRUGS (6)
  1. GUIAPHENESIN [Concomitant]
  2. WELLBUTRIN XL [Suspect]
     Indication: DEPRESSION
     Dosage: 20-40 TABLETS, NOT THE PRESCRIBED AMOUNT,150;300 MG, QD, ORAL
     Dates: start: 20080901
  3. WELLBUTRIN XL [Suspect]
     Indication: DEPRESSION
     Dosage: 20-40 TABLETS, NOT THE PRESCRIBED AMOUNT,150;300 MG, QD, ORAL
     Dates: start: 20080901
  4. WELLBUTRIN XL [Suspect]
     Indication: DEPRESSION
     Dosage: 20-40 TABLETS, NOT THE PRESCRIBED AMOUNT,150;300 MG, QD, ORAL
     Dates: start: 20091009, end: 20091009
  5. DIAZEPAM [Concomitant]
  6. ACETAMINOPHEN [Concomitant]

REACTIONS (36)
  - EMOTIONAL DISTRESS [None]
  - TREMOR [None]
  - GRAND MAL CONVULSION [None]
  - MULTIPLE DRUG OVERDOSE INTENTIONAL [None]
  - VOMITING [None]
  - DYSARTHRIA [None]
  - BLOOD GLUCOSE INCREASED [None]
  - BLOOD SODIUM INCREASED [None]
  - ANGER [None]
  - MEMORY IMPAIRMENT [None]
  - SUICIDE ATTEMPT [None]
  - GRIMACING [None]
  - ASPIRATION [None]
  - CONTUSION [None]
  - COGNITIVE DISORDER [None]
  - DRUG SCREEN POSITIVE [None]
  - MENTAL STATUS CHANGES [None]
  - LIP BLISTER [None]
  - PAIN [None]
  - DEPRESSION [None]
  - NAUSEA [None]
  - BACK PAIN [None]
  - SINUS TACHYCARDIA [None]
  - BRONCHIAL HYPERREACTIVITY [None]
  - HYPOXIC-ISCHAEMIC ENCEPHALOPATHY [None]
  - CARDIAC ARREST [None]
  - STATUS EPILEPTICUS [None]
  - AMNESIA [None]
  - CONVULSION [None]
  - ANXIETY [None]
  - PUPILLARY REFLEX IMPAIRED [None]
  - MYOCARDIAL INFARCTION [None]
  - ANION GAP INCREASED [None]
  - ENCEPHALOPATHY [None]
  - MUSCLE TWITCHING [None]
  - ATELECTASIS [None]
